FAERS Safety Report 10032735 (Version 1)
Quarter: 2014Q1

REPORT INFORMATION
  Report Type: Spontaneous
  Country: US (occurrence: US)
  Receive Date: 20140324
  Receipt Date: 20140324
  Transmission Date: 20141002
  Serious: Yes (Other)
  Sender: FDA-Public Use
  Company Number: US-AMGEN-USASP2014020148

PATIENT
  Age: 28 Year
  Sex: Female
  Weight: 92.06 kg

DRUGS (10)
  1. ENBREL [Suspect]
     Indication: PRODUCT USED FOR UNKNOWN INDICATION
     Dosage: 50 MG/ML, QWK
     Route: 058
  2. HUMALOG [Concomitant]
     Dosage: 100 ML, UNK
     Route: 065
  3. PLAQUENIL                          /00072602/ [Concomitant]
     Dosage: 200 MG, UNK
     Route: 065
  4. METHOTREXATE [Concomitant]
     Dosage: 2.5 MG, UNK
     Route: 065
  5. ALLEGRA [Concomitant]
     Dosage: 30 MG, UNK
     Route: 065
  6. QUINAPRIL [Concomitant]
     Dosage: 5 MG, UNK
  7. IBUPROFEN [Concomitant]
     Dosage: 200 MG, UNK
     Route: 065
  8. JUNEL [Concomitant]
     Dosage: 1/20
     Route: 065
  9. ETODOLAC [Concomitant]
     Dosage: 200 MG, UNK
     Route: 065
  10. TYLENOL                            /00020001/ [Concomitant]
     Dosage: 325 MG, UNK

REACTIONS (6)
  - Dyspnoea [Unknown]
  - Rheumatoid arthritis [Unknown]
  - Upper respiratory tract congestion [Unknown]
  - Increased upper airway secretion [Unknown]
  - Cough [Unknown]
  - Fatigue [Unknown]
